FAERS Safety Report 24619133 (Version 1)
Quarter: 2024Q4

REPORT INFORMATION
  Report Type: Spontaneous
  Country: US (occurrence: None)
  Receive Date: 20241114
  Receipt Date: 20241114
  Transmission Date: 20250114
  Serious: Yes (Life-Threatening, Disabling)
  Sender: Public
  Company Number: None

PATIENT
  Age: 93 Year
  Sex: Male
  Weight: 74.7 kg

DRUGS (4)
  1. EMPAGLIFLOZIN [Suspect]
     Active Substance: EMPAGLIFLOZIN
     Indication: Cardiac disorder
     Dates: start: 20241015, end: 20241105
  2. VITAMIN D3 [Concomitant]
     Active Substance: CHOLECALCIFEROL
  3. prostrate health [Concomitant]
  4. FISH OIL [Concomitant]
     Active Substance: FISH OIL

REACTIONS (1)
  - Weight increased [None]

NARRATIVE: CASE EVENT DATE: 20241105
